FAERS Safety Report 8596338-7 (Version None)
Quarter: 2012Q3

REPORT INFORMATION
  Report Type: 
  Country: None (occurrence: None)
  Receive Date: 20120815
  Receipt Date: 20120809
  Transmission Date: 20120928
  Serious: Yes (Life-Threatening, Hospitalization, Other)
  Sender: FDA-Public Use
  Company Number: US-CELGENEUS-163-21880-12081188

PATIENT
  Sex: Female

DRUGS (1)
  1. REVLIMID [Suspect]
     Indication: MULTIPLE MYELOMA
     Dosage: 25 MILLIGRAM
     Route: 048
     Dates: start: 20120613

REACTIONS (6)
  - OEDEMA PERIPHERAL [None]
  - PNEUMONIA [None]
  - DYSGEUSIA [None]
  - ASTHMA [None]
  - RASH [None]
  - CEREBROVASCULAR ACCIDENT [None]
